FAERS Safety Report 5808457-6 (Version None)
Quarter: 2008Q3

REPORT INFORMATION
  Report Type: 
  Country: None (occurrence: None)
  Receive Date: 20080710
  Receipt Date: 20080710
  Transmission Date: 20090109
  Serious: Yes (Other)
  Sender: FDA-Public Use
  Company Number: None

PATIENT
  Sex: Female
  Weight: 56.246 kg

DRUGS (9)
  1. DIGITEK 0.125MG BERTEK [Suspect]
     Indication: ARRHYTHMIA
     Dosage: 0.125MG 1 TABLET DAILY
     Dates: start: 20070401, end: 20080401
  2. DIGITEK 0.125MG BERTEK [Suspect]
     Indication: MYOCARDIAL INFARCTION
     Dosage: 0.125MG 1 TABLET DAILY
     Dates: start: 20070401, end: 20080401
  3. AVAPRO [Concomitant]
  4. PLAVIX [Concomitant]
  5. ADVAIR DISKUS 100/50 [Concomitant]
  6. PREDNISONE [Concomitant]
  7. LORAZEPAM [Concomitant]
  8. PREVACID [Concomitant]
  9. HYDROCODN [Concomitant]

REACTIONS (12)
  - ANOREXIA [None]
  - ASTHENIA [None]
  - BLOOD PRESSURE ABNORMAL [None]
  - CHEST PAIN [None]
  - CONFUSIONAL STATE [None]
  - DEPRESSION [None]
  - DIZZINESS [None]
  - HEADACHE [None]
  - HEART RATE IRREGULAR [None]
  - NAUSEA [None]
  - VISUAL IMPAIRMENT [None]
  - WEIGHT DECREASED [None]
